FAERS Safety Report 9458604 (Version 1)
Quarter: 2013Q3

REPORT INFORMATION
  Report Type: Spontaneous
  Country: US (occurrence: US)
  Receive Date: 20130814
  Receipt Date: 20130814
  Transmission Date: 20140515
  Serious: Yes (Hospitalization)
  Sender: FDA-Public Use
  Company Number: US-GILEAD-2013-0081238

PATIENT
  Sex: Male

DRUGS (2)
  1. LETAIRIS [Suspect]
     Indication: PRODUCT USED FOR UNKNOWN INDICATION
     Route: 048
     Dates: start: 20080918
  2. REVATIO [Concomitant]

REACTIONS (4)
  - Oxygen saturation decreased [Unknown]
  - Unevaluable event [Unknown]
  - Nasopharyngitis [Unknown]
  - Syncope [Unknown]
